FAERS Safety Report 6984036-2 (Version None)
Quarter: 2010Q3

REPORT INFORMATION
  Report Type: 
  Country: None (occurrence: None)
  Receive Date: 20100915
  Receipt Date: 20090616
  Transmission Date: 20110219
  Serious: No
  Sender: FDA-Public Use
  Company Number: US-WYE-H09322609

PATIENT
  Sex: Female

DRUGS (4)
  1. PRISTIQ [Suspect]
     Indication: DEPRESSION
     Route: 048
     Dates: start: 20090317, end: 20090428
  2. PRISTIQ [Suspect]
     Dosage: CUT PRISTIQ IN HALF TO TAPER OFF
     Route: 048
     Dates: start: 20090429, end: 20090507
  3. PRISTIQ [Suspect]
     Route: 048
     Dates: start: 20090512
  4. ADDERALL XR 10 [Concomitant]

REACTIONS (12)
  - ABNORMAL DREAMS [None]
  - BALANCE DISORDER [None]
  - DISTURBANCE IN ATTENTION [None]
  - DIZZINESS [None]
  - DRUG EFFECT DECREASED [None]
  - DRUG WITHDRAWAL SYNDROME [None]
  - FALL [None]
  - FATIGUE [None]
  - INTENTIONAL DRUG MISUSE [None]
  - NAUSEA [None]
  - TINNITUS [None]
  - VISION BLURRED [None]
